FAERS Safety Report 23694953 (Version 3)
Quarter: 2025Q1

REPORT INFORMATION
  Report Type: Spontaneous
  Country: FR (occurrence: FR)
  Receive Date: 20240402
  Receipt Date: 20250107
  Transmission Date: 20250408
  Serious: Yes (Hospitalization)
  Sender: RANBAXY
  Company Number: FR-SUN PHARMACEUTICAL INDUSTRIES LTD-2024RR-439586

PATIENT
  Age: 74 Year
  Sex: Male
  Weight: 80.5 kg

DRUGS (11)
  1. ACETAMINOPHEN [Suspect]
     Active Substance: ACETAMINOPHEN
     Indication: Pain
     Route: 048
     Dates: start: 20231215
  2. AMOXICILLIN [Suspect]
     Active Substance: AMOXICILLIN
     Indication: Enterococcal infection
     Dosage: 12 GRAM, DAILY
     Route: 040
     Dates: start: 20231218, end: 20231223
  3. CEFTRIAXONE [Suspect]
     Active Substance: CEFTRIAXONE
     Indication: Enterococcal infection
     Dosage: 4 GRAM, DAILY
     Route: 040
     Dates: start: 20231222, end: 20231223
  4. GENTAMICIN [Suspect]
     Active Substance: GENTAMICIN
     Indication: Enterococcal infection
     Route: 040
     Dates: start: 20231218, end: 20231222
  5. LANSOPRAZOLE [Suspect]
     Active Substance: LANSOPRAZOLE
     Indication: Product used for unknown indication
     Dosage: 15 MILLIGRAM, DAILY
     Route: 048
     Dates: start: 20231218, end: 20231223
  6. ONDANSETRON [Suspect]
     Active Substance: ONDANSETRON
     Indication: Large intestinal obstruction
     Route: 048
     Dates: start: 20231208, end: 20231227
  7. FUROSEMIDE [Concomitant]
     Active Substance: FUROSEMIDE
     Indication: Pulmonary embolism
     Dosage: 40 MILLIGRAM, DAILY
     Route: 048
     Dates: start: 20231208, end: 20231218
  8. LOVENOX [Concomitant]
     Active Substance: ENOXAPARIN SODIUM
     Indication: Pulmonary embolism
     Route: 058
     Dates: start: 20231222
  9. SPASFON [Concomitant]
     Indication: Large intestinal obstruction
     Route: 048
     Dates: start: 20231208, end: 20231217
  10. POTASSIUM CHLORIDE [Concomitant]
     Active Substance: POTASSIUM CHLORIDE
     Indication: Large intestinal obstruction
     Route: 048
     Dates: start: 20231208, end: 20231217
  11. MACROGOL 4000 ARROW [Concomitant]
     Indication: Large intestinal obstruction
     Route: 048
     Dates: start: 20231208, end: 20231222

REACTIONS (2)
  - Rash maculo-papular [Not Recovered/Not Resolved]
  - Epidermolysis [Not Recovered/Not Resolved]

NARRATIVE: CASE EVENT DATE: 20231223
